FAERS Safety Report 14771220 (Version 1)
Quarter: 2018Q2

REPORT INFORMATION
  Report Type: Spontaneous
  Country: US (occurrence: US)
  Receive Date: 20180417
  Receipt Date: 20180417
  Transmission Date: 20180711
  Serious: No
  Sender: FDA-Public Use
  Company Number: US-ALLERGAN-1718480US

PATIENT
  Sex: Female
  Weight: 56.24 kg

DRUGS (1)
  1. LATISSE [Suspect]
     Active Substance: BIMATOPROST
     Indication: GROWTH OF EYELASHES
     Dosage: 1 GTT OR 1/2 GTT UPPER EYE LIDS
     Route: 003

REACTIONS (6)
  - Incorrect dose administered [Unknown]
  - Erythema of eyelid [Unknown]
  - Ocular discomfort [Unknown]
  - Skin hyperpigmentation [Unknown]
  - Eyelid sensory disorder [Unknown]
  - Inappropriate schedule of drug administration [Unknown]
